FAERS Safety Report 22115911 (Version 1)
Quarter: 2023Q1

REPORT INFORMATION
  Report Type: Spontaneous
  Country: US (occurrence: None)
  Receive Date: 20230319
  Receipt Date: 20230319
  Transmission Date: 20230418
  Serious: Yes (Disabling, Other)
  Sender: FDA-Public Use
  Company Number: None

PATIENT
  Age: 55 Year
  Sex: Female
  Weight: 83.25 kg

DRUGS (1)
  1. KEYTRUDA [Suspect]
     Active Substance: PEMBROLIZUMAB
     Indication: Immunochemotherapy
     Dates: start: 20230130, end: 20230220

REACTIONS (4)
  - Endocrine ophthalmopathy [None]
  - Diplopia [None]
  - Vision blurred [None]
  - Rash [None]

NARRATIVE: CASE EVENT DATE: 20230223
